FAERS Safety Report 8840878 (Version 3)
Quarter: 2013Q3

REPORT INFORMATION
  Report Type: Spontaneous
  Country: JP (occurrence: JP)
  Receive Date: 20121015
  Receipt Date: 20130904
  Transmission Date: 20140515
  Serious: Yes (Hospitalization)
  Sender: FDA-Public Use
  Company Number: PHHY2012JP090855

PATIENT
  Age: 57 Year
  Sex: Male

DRUGS (1)
  1. DICLOFENAC [Suspect]
     Indication: BACK PAIN
     Dosage: UNK UKN, UNK
     Route: 048
     Dates: start: 201109, end: 20111122

REACTIONS (9)
  - Nephrotic syndrome [Recovered/Resolved]
  - Oedema peripheral [Recovered/Resolved]
  - Hyperplasia [Recovered/Resolved]
  - Kidney enlargement [Recovered/Resolved]
  - Glomerulonephritis minimal lesion [Recovered/Resolved]
  - Renal failure acute [Recovered/Resolved]
  - Gastric ulcer haemorrhage [Recovered/Resolved]
  - Abdominal pain [Recovered/Resolved]
  - Abdominal tenderness [Recovered/Resolved]
